FAERS Safety Report 7776751-8 (Version None)
Quarter: 2011Q3

REPORT INFORMATION
  Report Type: 
  Country: None (occurrence: None)
  Receive Date: 20110926
  Receipt Date: 20110531
  Transmission Date: 20111222
  Serious: Yes (Other)
  Sender: FDA-Public Use
  Company Number: US-BAYER-2011-029548

PATIENT
  Sex: Female

DRUGS (1)
  1. MIRENA [Suspect]
     Indication: CONTRACEPTION
     Dosage: 20 MCG/24HR, CONT
     Route: 015
     Dates: start: 20110310, end: 20110322

REACTIONS (7)
  - GENITAL HAEMORRHAGE [None]
  - SUICIDAL IDEATION [None]
  - BACK PAIN [None]
  - PROCEDURAL PAIN [None]
  - ABDOMINAL PAIN [None]
  - PAIN [None]
  - DEPRESSION [None]
